FAERS Safety Report 14103747 (Version 1)
Quarter: 2017Q4

REPORT INFORMATION
  Report Type: Report from Study
  Country: CO (occurrence: CO)
  Receive Date: 20171018
  Receipt Date: 20171018
  Transmission Date: 20180321
  Serious: Yes (Hospitalization)
  Sender: FDA-Public Use
  Company Number: CO-ASTELLAS-2017US042326

PATIENT
  Age: 73 Year
  Sex: Female

DRUGS (1)
  1. TACROLIMUS. [Suspect]
     Active Substance: TACROLIMUS
     Indication: LIVER TRANSPLANT
     Dosage: 15 MG (3 CAPSULES OF 5 MG), ONCE DAILY
     Route: 048
     Dates: start: 20170117

REACTIONS (4)
  - Headache [Recovering/Resolving]
  - Abdominal pain [Recovering/Resolving]
  - Inflammation [Recovering/Resolving]
  - Ear pain [Recovering/Resolving]

NARRATIVE: CASE EVENT DATE: 20170902
